FAERS Safety Report 5934362-0 (Version None)
Quarter: 2008Q4

REPORT INFORMATION
  Report Type: 
  Country: None (occurrence: None)
  Receive Date: 20081029
  Receipt Date: 20081022
  Transmission Date: 20090506
  Serious: Yes (Other)
  Sender: FDA-Public Use
  Company Number: BR-AVENTIS-200820140GDDC

PATIENT
  Age: 60 Year
  Sex: Female
  Weight: 64 kg

DRUGS (3)
  1. LANTUS [Suspect]
     Route: 058
     Dates: start: 20060101
  2. UNKNOWN DRUG [Concomitant]
     Indication: DEPRESSION
  3. INSULIN RAPID                      /01094901/ [Concomitant]

REACTIONS (4)
  - ALOPECIA [None]
  - ANEURYSM [None]
  - HEADACHE [None]
  - HYPERGLYCAEMIA [None]
